FAERS Safety Report 10033780 (Version 2)
Quarter: 2014Q2

REPORT INFORMATION
  Report Type: Spontaneous
  Country: US (occurrence: US)
  Receive Date: 20140325
  Receipt Date: 20140618
  Transmission Date: 20141212
  Serious: No
  Sender: FDA-Public Use
  Company Number: US-BIOGENIDEC-2014BI024850

PATIENT
  Age: 63 Year
  Sex: Female

DRUGS (6)
  1. TECFIDERA [Suspect]
     Indication: MULTIPLE SCLEROSIS
     Route: 048
     Dates: start: 20140227
  2. TECFIDERA [Suspect]
     Indication: MULTIPLE SCLEROSIS
     Route: 048
     Dates: start: 20140227
  3. CARBAMAZEPINE ER [Concomitant]
  4. AMLODIPINE BESYLATE [Concomitant]
  5. BENAZEPRIL HCL [Concomitant]
  6. CYANOCOBALAMIN [Concomitant]

REACTIONS (4)
  - Dizziness [Recovered/Resolved]
  - Haematochezia [Unknown]
  - Seasonal allergy [Unknown]
  - Diarrhoea [Recovered/Resolved]
